FAERS Safety Report 8246544-6 (Version None)
Quarter: 2012Q1

REPORT INFORMATION
  Report Type: 
  Country: None (occurrence: None)
  Receive Date: 20120330
  Receipt Date: 20120327
  Transmission Date: 20120608
  Serious: Yes (Life-Threatening, Hospitalization, Other)
  Sender: FDA-Public Use
  Company Number: US-JNJFOC-20120214567

PATIENT
  Sex: Female
  Weight: 68.04 kg

DRUGS (2)
  1. CO-Q10 [Concomitant]
  2. XARELTO [Suspect]
     Indication: DEEP VEIN THROMBOSIS
     Route: 048
     Dates: start: 20120214, end: 20120223

REACTIONS (3)
  - ADRENAL HAEMORRHAGE [None]
  - PULMONARY EMBOLISM [None]
  - THROMBOCYTOPENIA [None]
